FAERS Safety Report 21943391 (Version 1)
Quarter: 2023Q1

REPORT INFORMATION
  Report Type: Report from Study
  Country: US (occurrence: US)
  Receive Date: 20230202
  Receipt Date: 20230202
  Transmission Date: 20230418
  Serious: Yes (Hospitalization, Other)
  Sender: FDA-Public Use
  Company Number: US-ABBVIE-4291071

PATIENT
  Age: 81 Year
  Sex: Female
  Weight: 45.359 kg

DRUGS (5)
  1. CREON [Suspect]
     Active Substance: PANCRELIPASE AMYLASE\PANCRELIPASE LIPASE\PANCRELIPASE PROTEASE
     Indication: Pancreatic failure
     Route: 048
     Dates: start: 2011, end: 20230126
  2. CREON [Suspect]
     Active Substance: PANCRELIPASE AMYLASE\PANCRELIPASE LIPASE\PANCRELIPASE PROTEASE
     Indication: Pancreatic failure
     Dosage: FIRST ADMIN DATE: JAN 2023
     Route: 048
  3. GABAPENTIN [Concomitant]
     Active Substance: GABAPENTIN
     Indication: Muscle relaxant therapy
  4. DIAZEPAM [Concomitant]
     Active Substance: DIAZEPAM
     Indication: Muscle relaxant therapy
  5. OMEPRAZOLE [Concomitant]
     Active Substance: OMEPRAZOLE
     Indication: Antacid therapy

REACTIONS (9)
  - Pancreatic carcinoma [Not Recovered/Not Resolved]
  - Abdominal pain upper [Recovering/Resolving]
  - Feeding disorder [Not Recovered/Not Resolved]
  - Pancreatitis [Recovering/Resolving]
  - Abdominal pain [Recovering/Resolving]
  - Anaemia [Unknown]
  - Feeling abnormal [Recovering/Resolving]
  - Peripheral swelling [Recovering/Resolving]
  - Rectal haemorrhage [Recovered/Resolved]

NARRATIVE: CASE EVENT DATE: 20221226
